FAERS Safety Report 7104606-0 (Version None)
Quarter: 2010Q4

REPORT INFORMATION
  Report Type: 
  Country: None (occurrence: None)
  Receive Date: 20101116
  Receipt Date: 20100303
  Transmission Date: 20110411
  Serious: Yes (Other)
  Sender: FDA-Public Use
  Company Number: US-ASTRAZENECA-2010SE16234

PATIENT
  Age: 17669 Day
  Sex: Male
  Weight: 76.8 kg

DRUGS (4)
  1. SEROQUEL [Suspect]
     Dosage: 25 MG-100 MG DAILY AS DIRECTED
     Route: 048
     Dates: start: 20040517
  2. LYRICA [Concomitant]
     Dosage: 75 BID
     Dates: start: 20060615
  3. BYETTA [Concomitant]
     Dates: start: 20060615
  4. TOPAMAX [Concomitant]
     Dates: end: 20060615

REACTIONS (2)
  - NEUROPATHY PERIPHERAL [None]
  - TYPE 2 DIABETES MELLITUS [None]
